FAERS Safety Report 10221443 (Version 2)
Quarter: 2014Q2

REPORT INFORMATION
  Report Type: Spontaneous
  Country: DE (occurrence: DE)
  Receive Date: 20140606
  Receipt Date: 20140606
  Transmission Date: 20141212
  Serious: Yes (Other)
  Sender: FDA-Public Use
  Company Number: DE-009507513-1312DEU003456

PATIENT
  Sex: Female

DRUGS (7)
  1. RIBAVIRIN [Suspect]
     Dosage: 1000 MG QW, WEEK 1-5
  2. RIBAVIRIN [Suspect]
     Dosage: 600 MG, WEEK 6-27
  3. PEGINTERFERON ALFA-2A [Suspect]
     Dosage: 180 MICROGRAM, UNK
  4. TELAPREVIR [Suspect]
     Indication: CHRONIC HEPATITIS C
     Dosage: 2250 MG, QD
  5. TELAPREVIR [Suspect]
     Dosage: 180 MICROGRAM, UNK
  6. EPOETIN [Suspect]
     Indication: CHRONIC HEPATITIS C
     Dosage: 6000 IU/WEEK, WEEK 1-7
  7. EPOETIN [Suspect]
     Indication: HAEMODIALYSIS
     Dosage: 16000 IU/WEEK, WEEK 8-27

REACTIONS (3)
  - Hypertensive crisis [Unknown]
  - Transfusion [Unknown]
  - Anaemia [Unknown]
